FAERS Safety Report 6041838-7 (Version None)
Quarter: 2009Q1

REPORT INFORMATION
  Report Type: 
  Country: None (occurrence: None)
  Receive Date: 20090116
  Receipt Date: 20090108
  Transmission Date: 20090719
  Serious: Yes (Hospitalization, Other)
  Sender: FDA-Public Use
  Company Number: US-PFIZER INC-2009153873

PATIENT
  Age: 64 Year
  Sex: Female
  Weight: 68.934 kg

DRUGS (4)
  1. LIPITOR [Suspect]
     Indication: BLOOD CHOLESTEROL
     Dates: start: 20081001
  2. AZITHROMYCIN [Suspect]
     Indication: NASOPHARYNGITIS
     Dosage: 500/250MG
     Dates: end: 20081201
  3. AZITHROMYCIN [Suspect]
     Indication: LOWER RESPIRATORY TRACT INFECTION
  4. LYRICA [Suspect]
     Indication: NEUROPATHY PERIPHERAL
     Dates: start: 20090101

REACTIONS (6)
  - DIZZINESS [None]
  - HEART RATE DECREASED [None]
  - INTERVERTEBRAL DISC PROTRUSION [None]
  - NASOPHARYNGITIS [None]
  - NEUROPATHY PERIPHERAL [None]
  - VIRAL INFECTION [None]
